FAERS Safety Report 7155183-X (Version None)
Quarter: 2010Q4

REPORT INFORMATION
  Report Type: 
  Country: None (occurrence: None)
  Receive Date: 20101214
  Receipt Date: 20091201
  Transmission Date: 20110411
  Serious: Yes (Hospitalization, Other)
  Sender: FDA-Public Use
  Company Number: US-AMGEN-TCS345509

PATIENT

DRUGS (2)
  1. ENBREL [Suspect]
     Indication: ANKYLOSING SPONDYLITIS
     Dosage: 50 MG, QWK
     Route: 058
     Dates: start: 20050320
  2. ADALIMUMAB [Concomitant]

REACTIONS (5)
  - ANKYLOSING SPONDYLITIS [None]
  - BACTERIAL INFECTION [None]
  - DEVICE MALFUNCTION [None]
  - GANGRENE [None]
  - INJECTION SITE INDURATION [None]
